FAERS Safety Report 8841224 (Version 5)
Quarter: 2013Q4

REPORT INFORMATION
  Report Type: Report from Study
  Country: PL (occurrence: PL)
  Receive Date: 20121015
  Receipt Date: 20131010
  Transmission Date: 20140711
  Serious: Yes (Hospitalization)
  Sender: FDA-Public Use
  Company Number: PL-ROCHE-1141740

PATIENT
  Age: 58 Year
  Sex: Female
  Weight: 65 kg

DRUGS (6)
  1. PEG-INTERFERON ALFA 2A [Suspect]
     Indication: HEPATITIS C
     Dosage: MOST RECENT DOSE PRIOR TO SAE: 29/JUN/2012. TEMPORARILY INTERRUPTED ON 06/JUL/2012 DUE TO SAE.
     Route: 065
     Dates: start: 20120113, end: 20120706
  2. RIBAVIRIN [Suspect]
     Indication: HEPATITIS C
     Dosage: 400 MG IN MORNING AND 600 MG IN THE EVENING
     Route: 065
     Dates: start: 20120113, end: 20120712
  3. SILICA [Suspect]
     Indication: ALOPECIA
     Route: 065
  4. CO-PRESTARIUM [Concomitant]
  5. DEBIO-025 (UNIL-025) [Suspect]
     Indication: HEPATITIS C
     Dosage: 6 CAPSULE DAILY(THREE CAPSULE IN MORNING AND 3 CAPSULE IN EVENING)
     Route: 065
     Dates: start: 20120113
  6. DEBIO-025 (UNIL-025) [Suspect]
     Dosage: 5 CAPSULE DAILY (THREE IN THE MORNING AND TWO CAPSULE IN THE EVENING
     Route: 065
     Dates: start: 20120120, end: 20120418

REACTIONS (1)
  - Pulmonary fibrosis [Recovering/Resolving]
